FAERS Safety Report 19278777 (Version 6)
Quarter: 2022Q3

REPORT INFORMATION
  Report Type: Spontaneous
  Country: JP (occurrence: JP)
  Receive Date: 20210520
  Receipt Date: 20220714
  Transmission Date: 20221027
  Serious: Yes (Death, Other)
  Sender: FDA-Public Use
  Company Number: JP-GSKJP-JP2021JPN104127AA

PATIENT

DRUGS (16)
  1. TRELEGY ELLIPTA [Suspect]
     Active Substance: FLUTICASONE FUROATE\UMECLIDINIUM BROMIDE\VILANTEROL TRIFENATATE
     Indication: Asthma
     Dosage: 200 ?G, QD
     Route: 055
     Dates: start: 20210402
  2. OLOPATADINE HYDROCHLORIDE [Suspect]
     Active Substance: OLOPATADINE HYDROCHLORIDE
     Indication: Rhinitis allergic
     Dosage: UNK
     Route: 048
     Dates: start: 20210402
  3. PREDONINE [Suspect]
     Active Substance: PREDNISOLONE
     Indication: Wheezing
     Dosage: UNK
     Route: 048
     Dates: start: 20210402
  4. FLUTICASONE FUROATE\VILANTEROL TRIFENATATE [Concomitant]
     Active Substance: FLUTICASONE FUROATE\VILANTEROL TRIFENATATE
     Indication: Asthma
     Dosage: 200 ?G
     Dates: start: 201906
  5. FLUTICASONE FUROATE\VILANTEROL TRIFENATATE [Concomitant]
     Active Substance: FLUTICASONE FUROATE\VILANTEROL TRIFENATATE
     Dosage: 100 ?G
     Dates: start: 202007
  6. FENOFIBRATE [Concomitant]
     Active Substance: FENOFIBRATE
     Indication: Blood triglycerides increased
     Dosage: UNK
     Route: 048
     Dates: start: 20160330
  7. CLOPIDOGREL BISULFATE [Concomitant]
     Active Substance: CLOPIDOGREL BISULFATE
     Indication: Visual field defect
     Dosage: UNK
     Route: 048
     Dates: start: 20191127
  8. CLOPIDOGREL BISULFATE [Concomitant]
     Active Substance: CLOPIDOGREL BISULFATE
     Indication: Cerebral infarction
  9. RABEPRAZOLE SODIUM TABLET [Concomitant]
     Dosage: UNK
     Route: 048
     Dates: start: 20191127
  10. CILNIDIPINE TABLETS [Concomitant]
     Indication: Hypertension
     Dosage: UNK
     Route: 048
     Dates: start: 20190116
  11. ETHYL ICOSAPENTATE CAPSULE [Concomitant]
     Indication: Arteriosclerosis
     Dosage: UNK
     Route: 048
     Dates: start: 20160226
  12. VASOLAN TABLET [Concomitant]
     Indication: Tachycardia
     Dosage: UNK
     Route: 048
     Dates: start: 20150115
  13. PULMICORT TURBUHALER [Concomitant]
     Active Substance: BUDESONIDE
     Indication: Asthma
     Dosage: OCCASIONALLY USED
     Dates: start: 200805
  14. PULMICORT TURBUHALER [Concomitant]
     Active Substance: BUDESONIDE
     Dosage: 200 MCG PER DOSE, 4 TIMES
     Route: 055
     Dates: start: 20150420
  15. PROCATEROL HYDROCHLORIDE [Concomitant]
     Active Substance: PROCATEROL HYDROCHLORIDE
     Dosage: UNK
     Route: 055
  16. FLUTICASONE PROPIONATE\FORMOTEROL FUMARATE [Concomitant]
     Active Substance: FLUTICASONE PROPIONATE\FORMOTEROL FUMARATE
     Indication: Asthma
     Dosage: UNK
     Dates: start: 201804

REACTIONS (8)
  - Cardiac arrest [Fatal]
  - Laryngeal haematoma [Fatal]
  - Retroperitoneal haematoma [Fatal]
  - Asphyxia [Fatal]
  - Arrhythmia [Fatal]
  - Ventricular fibrillation [Fatal]
  - Pneumothorax [Unknown]
  - Sternal fracture [Unknown]

NARRATIVE: CASE EVENT DATE: 20210402
